FAERS Safety Report 4832932-4 (Version None)
Quarter: 2005Q4

REPORT INFORMATION
  Report Type: 
  Country: None (occurrence: None)
  Receive Date: 20051121
  Receipt Date: 20051110
  Transmission Date: 20060501
  Serious: Yes (Hospitalization, Other)
  Sender: FDA-Public Use
  Company Number: US-MERCK-0511USA01929

PATIENT
  Age: 65 Year
  Sex: Female
  Weight: 86 kg

DRUGS (10)
  1. VIOXX [Suspect]
     Indication: ARTHRITIS
     Route: 048
     Dates: start: 20000126, end: 20031104
  2. AMARYL [Concomitant]
     Route: 065
  3. NORVASC [Concomitant]
     Route: 065
  4. CATAPRES [Concomitant]
     Route: 065
  5. VIVACTIL [Concomitant]
     Route: 065
  6. CLONIDINE [Concomitant]
     Route: 065
  7. CAPTOPRIL [Concomitant]
     Route: 065
  8. SYNTHROID [Concomitant]
     Route: 065
  9. HUMALOG [Concomitant]
     Route: 065
  10. LOPID [Concomitant]
     Route: 065

REACTIONS (2)
  - CEREBROVASCULAR ACCIDENT [None]
  - NECK INJURY [None]
